FAERS Safety Report 20675082 (Version 4)
Quarter: 2022Q2

REPORT INFORMATION
  Report Type: Spontaneous
  Country: JP (occurrence: JP)
  Receive Date: 20220405
  Receipt Date: 20220516
  Transmission Date: 20220721
  Serious: Yes (Hospitalization, Other)
  Sender: FDA-Public Use
  Company Number: JP-DSJP-DSJ-2022-106164

PATIENT
  Age: 72 Year
  Sex: Male
  Weight: 71.8 kg

DRUGS (18)
  1. ENHERTU [Suspect]
     Active Substance: FAM-TRASTUZUMAB DERUXTECAN-NXKI
     Indication: Gastric cancer
     Dosage: 6.4 MG/KG, ONCE EVERY 3 WK
     Route: 041
     Dates: start: 20220125, end: 20220125
  2. ENHERTU [Suspect]
     Active Substance: FAM-TRASTUZUMAB DERUXTECAN-NXKI
     Dosage: 5.4 MG/KG, ONCE EVERY 3 WK
     Route: 041
     Dates: start: 20220215, end: 20220215
  3. ENHERTU [Suspect]
     Active Substance: FAM-TRASTUZUMAB DERUXTECAN-NXKI
     Dosage: 4.4 MG/KG, ONCE EVERY 3 WK
     Route: 041
     Dates: start: 20220308, end: 20220308
  4. OLMESARTAN MEDOXOMIL [Concomitant]
     Active Substance: OLMESARTAN MEDOXOMIL
     Indication: Hypertension
     Dosage: 20 MG, QD
     Route: 048
  5. BENZBROMARONE [Concomitant]
     Active Substance: BENZBROMARONE
     Indication: Hyperuricaemia
     Dosage: 50 MG, QD
     Route: 048
  6. MYTEAR [BORIC ACID;POTASSIUM CHLORIDE;SODIUM BICARBONATE;SODIUM CHLORI [Concomitant]
     Indication: Eye discharge
     Dosage: UNK UNK, AS NEEDED
     Route: 047
     Dates: start: 20210319
  7. MIYA-BM [Concomitant]
     Active Substance: CLOSTRIDIUM BUTYRICUM SPORES STRAIN M-55
     Indication: Diarrhoea
     Dosage: 1 DF, TID
     Route: 048
     Dates: start: 20210406, end: 20210429
  8. LOPERAMIDE HYDROCHLORIDE [Concomitant]
     Active Substance: LOPERAMIDE HYDROCHLORIDE
     Indication: Diarrhoea
     Dosage: 1 MG, AS NEEDED
     Route: 048
     Dates: start: 20210406, end: 20210429
  9. GLYCOSAMINOGLYCANS [Concomitant]
     Active Substance: GLYCOSAMINOGLYCANS
     Indication: Asteatosis
     Dosage: APPROPRIATE AMOUNT, AS NEEDED
     Route: 050
     Dates: start: 20210410
  10. ZINC [Concomitant]
     Active Substance: ZINC
     Indication: Zinc deficiency
     Dosage: 25 MG, BID
     Route: 048
     Dates: start: 20210611, end: 20210802
  11. METHYLCOBALAMIN [Concomitant]
     Active Substance: METHYLCOBALAMIN
     Indication: Neuropathy peripheral
     Dosage: 500 UG, TID
     Route: 048
     Dates: start: 20210907
  12. ACETAMINOPHEN [Concomitant]
     Active Substance: ACETAMINOPHEN
     Indication: Neuropathy peripheral
     Dosage: 500 MG, TID
     Route: 048
     Dates: start: 20210907, end: 20211129
  13. LOXOPROFEN SODIUM [Concomitant]
     Active Substance: LOXOPROFEN SODIUM
     Indication: Neuropathy peripheral
     Dosage: 60 MG, AS NEEDED
     Route: 048
     Dates: start: 20210907, end: 20210913
  14. HERBALS [Concomitant]
     Active Substance: HERBALS
     Indication: Neuropathy peripheral
     Dosage: 2.5 G, TID
     Route: 048
     Dates: start: 20210914
  15. CLARITIN REDITABS [Concomitant]
     Active Substance: LORATADINE
     Indication: Pruritus
     Dosage: 10 MG, QD
     Route: 048
     Dates: start: 20211019, end: 20211101
  16. BILASTINE [Concomitant]
     Active Substance: BILASTINE
     Indication: Pruritus
     Dosage: 20 MG, QD
     Route: 048
     Dates: start: 20211102, end: 20211115
  17. BEPOTASTINE BESYLATE [Concomitant]
     Active Substance: BEPOTASTINE BESYLATE
     Indication: Pruritus
     Dosage: 10 MG, BID
     Route: 048
     Dates: start: 20211116
  18. DEXAMETHASONE DIPROPIONATE [Concomitant]
     Active Substance: DEXAMETHASONE DIPROPIONATE
     Indication: Pruritus
     Dosage: APPROPRIATE AMOUNT, AS NEEDED
     Route: 050
     Dates: start: 20211116

REACTIONS (7)
  - Pulmonary toxicity [Recovering/Resolving]
  - Neutrophil count decreased [Recovering/Resolving]
  - Platelet count decreased [Recovering/Resolving]
  - Anaemia [Recovering/Resolving]
  - Febrile neutropenia [Recovering/Resolving]
  - Febrile neutropenia [Recovering/Resolving]
  - Nausea [Unknown]

NARRATIVE: CASE EVENT DATE: 20220126
